FAERS Safety Report 18303663 (Version 1)
Quarter: 2020Q3

REPORT INFORMATION
  Report Type: Spontaneous
  Country: DE (occurrence: DE)
  Receive Date: 20200924
  Receipt Date: 20200924
  Transmission Date: 20201103
  Serious: Yes (Other)
  Sender: FDA-Public Use
  Company Number: DE-OCTA-GAM17320DE

PATIENT
  Age: 56 Year
  Sex: Female

DRUGS (1)
  1. OCTAGAM IMMUNE GLOBULIN (HUMAN) [Suspect]
     Active Substance: HUMAN IMMUNOGLOBULIN G
     Indication: CHRONIC INFLAMMATORY DEMYELINATING POLYRADICULONEUROPATHY
     Dosage: EVERY 3 WEEKS
     Route: 042

REACTIONS (3)
  - Anti-VGCC antibody positive [Recovered/Resolved]
  - Misleading laboratory test result [Recovered/Resolved]
  - Myasthenic syndrome [Unknown]

NARRATIVE: CASE EVENT DATE: 20200709
